FAERS Safety Report 7522633-6 (Version None)
Quarter: 2011Q2

REPORT INFORMATION
  Report Type: 
  Country: None (occurrence: None)
  Receive Date: 20110525
  Receipt Date: 20110510
  Transmission Date: 20111010
  Serious: Yes (Hospitalization)
  Sender: FDA-Public Use
  Company Number: ALA_01727_2011

PATIENT
  Sex: Male
  Weight: 83.0083 kg

DRUGS (28)
  1. ASPIRIN [Concomitant]
  2. NORVASC [Concomitant]
  3. PROTONIX [Concomitant]
  4. VASOTEC [Concomitant]
  5. ALTACE [Concomitant]
  6. HYDRODIURAL [Concomitant]
  7. ZOSYN [Concomitant]
  8. CATAPRES /00171101/ [Concomitant]
  9. ZOFRAN [Concomitant]
  10. LOVENOX [Concomitant]
  11. GEODON [Concomitant]
  12. ATROPINE [Concomitant]
  13. LOPRESSOR [Concomitant]
  14. MEPREIDINE HCL [Concomitant]
  15. METOPROLOL [Concomitant]
  16. K-DUR [Concomitant]
  17. MORPHINE [Concomitant]
  18. PHENERGAN /0003301/ [Concomitant]
  19. REGLAN [Suspect]
     Indication: DYSPHAGIA
     Dosage: SEE IMAGE
     Route: 042
     Dates: start: 20070601, end: 20080301
  20. REGLAN [Suspect]
     Indication: GASTROOESOPHAGEAL REFLUX DISEASE
     Dosage: SEE IMAGE
     Route: 042
     Dates: start: 20070601, end: 20080301
  21. REGLAN [Suspect]
     Indication: DYSPHAGIA
     Dosage: SEE IMAGE
     Route: 042
     Dates: start: 20071009, end: 20071010
  22. REGLAN [Suspect]
     Indication: GASTROOESOPHAGEAL REFLUX DISEASE
     Dosage: SEE IMAGE
     Route: 042
     Dates: start: 20071009, end: 20071010
  23. REGLAN [Suspect]
     Indication: DYSPHAGIA
     Dosage: SEE IMAGE
     Route: 042
     Dates: start: 20070522
  24. REGLAN [Suspect]
     Indication: GASTROOESOPHAGEAL REFLUX DISEASE
     Dosage: SEE IMAGE
     Route: 042
     Dates: start: 20070522
  25. REGLAN [Suspect]
     Indication: DYSPHAGIA
     Dosage: SEE IMAGE
     Route: 042
     Dates: start: 20070422, end: 20070424
  26. REGLAN [Suspect]
     Indication: GASTROOESOPHAGEAL REFLUX DISEASE
     Dosage: SEE IMAGE
     Route: 042
     Dates: start: 20070422, end: 20070424
  27. NITRO /00003201/ [Concomitant]
  28. ASPIRIN [Concomitant]

REACTIONS (27)
  - DELIRIUM [None]
  - LEFT ATRIAL DILATATION [None]
  - PERICARDITIS [None]
  - CARDIOMEGALY [None]
  - ELECTROCARDIOGRAM ABNORMAL [None]
  - MUSCLE TWITCHING [None]
  - MYOCARDIAL INFARCTION [None]
  - RIGHT ATRIAL DILATATION [None]
  - TARDIVE DYSKINESIA [None]
  - VOMITING [None]
  - DYSPHAGIA [None]
  - BRADYCARDIA [None]
  - VENTRICULAR HYPERTROPHY [None]
  - NAUSEA [None]
  - ROAD TRAFFIC ACCIDENT [None]
  - HYPERTENSION [None]
  - ISCHAEMIA [None]
  - BACK INJURY [None]
  - CARDIAC FAILURE [None]
  - ABDOMINAL PAIN [None]
  - SINUS BRADYCARDIA [None]
  - ELECTROCARDIOGRAM T WAVE ABNORMAL [None]
  - MOVEMENT DISORDER [None]
  - CHEST PAIN [None]
  - WEIGHT DECREASED [None]
  - NECK INJURY [None]
  - BUNDLE BRANCH BLOCK LEFT [None]
